FAERS Safety Report 16583962 (Version 1)
Quarter: 2020Q3

REPORT INFORMATION
  Report Type: Spontaneous
  Country: DE (occurrence: DE)
  Receive Date: 20190717
  Receipt Date: 20190717
  Transmission Date: 20201104
  Serious: Yes (Hospitalization)
  Sender: FDA-Public Use
  Company Number: DE-TEVA-2019-DE-1077979

PATIENT
  Age: 71 Year
  Sex: Female

DRUGS (7)
  1. ROLENIUM 50 MIKROGRAMM /250 MIKROGRAMM [Suspect]
     Active Substance: FLUTICASONE PROPIONATE\SALMETEROL XINAFOATE
     Dosage: 50|250 MICROGRAM, 1?0?1?0
     Route: 065
  2. IBUPROFEN. [Suspect]
     Active Substance: IBUPROFEN
     Dosage: 600 MG, NEED
     Route: 065
  3. PANTOPRAZOL [Concomitant]
     Active Substance: PANTOPRAZOLE SODIUM
     Dosage: 40 MG, 1?0?1?0
  4. ETORICOXIB. [Suspect]
     Active Substance: ETORICOXIB
     Dosage: 30 MG, NEW SINCE ABOUT 1 MONTH
     Route: 065
  5. FUROSEMID [Concomitant]
     Active Substance: FUROSEMIDE
     Dosage: 40 MG, IRREGULAR
  6. SALBUTAMOL [Concomitant]
     Active Substance: ALBUTEROL
     Dosage: NK MG, NEED
     Route: 055
  7. VALSARTAN. [Concomitant]
     Active Substance: VALSARTAN
     Dosage: 160 MG, 0.5?0?0?0

REACTIONS (4)
  - Dyspnoea [Unknown]
  - Cough [Unknown]
  - Product prescribing error [Unknown]
  - Haemoptysis [Unknown]
